FAERS Safety Report 4389971-X (Version None)
Quarter: 2004Q2

REPORT INFORMATION
  Report Type: 
  Country: None (occurrence: None)
  Receive Date: 20040630
  Receipt Date: 20040615
  Transmission Date: 20050107
  Serious: Yes (Hospitalization)
  Sender: FDA-Public Use
  Company Number: 200311387JP

PATIENT
  Age: 50 Year
  Sex: Female

DRUGS (12)
  1. ARAVA [Suspect]
     Indication: RHEUMATOID ARTHRITIS
     Dosage: 20 MG/DAY PO
     Dates: start: 20031106, end: 20031119
  2. PREDONINE [Concomitant]
  3. BUFFERIN [Concomitant]
  4. ULGUT [Concomitant]
  5. LIPITOR [Concomitant]
  6. DORNER [Concomitant]
  7. BREDININ [Concomitant]
  8. EPADEL [Concomitant]
  9. LORCAM [Concomitant]
  10. SELBEX [Concomitant]
  11. BAYASPRIN [Concomitant]
  12. TOKI-SHIGYAKU-KAGOSYU-YUSYOU-KYOUTO (CHINESE HERBAL MEDICINE) [Concomitant]

REACTIONS (11)
  - ALANINE AMINOTRANSFERASE INCREASED [None]
  - ASPARTATE AMINOTRANSFERASE INCREASED [None]
  - BLOOD LACTATE DEHYDROGENASE INCREASED [None]
  - DYSGEUSIA [None]
  - LIP EROSION [None]
  - MARKEDLY REDUCED DIETARY INTAKE [None]
  - NAUSEA [None]
  - PLATELET COUNT DECREASED [None]
  - RASH [None]
  - SKIN TEST POSITIVE [None]
  - WHITE BLOOD CELL COUNT DECREASED [None]
